FAERS Safety Report 6859762-6 (Version None)
Quarter: 2010Q3

REPORT INFORMATION
  Report Type: 
  Country: None (occurrence: None)
  Receive Date: 20100719
  Receipt Date: 20100719
  Transmission Date: 20110219
  Serious: Yes (Other)
  Sender: FDA-Public Use
  Company Number: None

PATIENT
  Age: 58 Year
  Sex: Male
  Weight: 85.2762 kg

DRUGS (1)
  1. FINASTERIDE [Suspect]
     Indication: PROSTATITIS
     Dosage: 5MG 1
     Dates: start: 20060101, end: 20060301

REACTIONS (8)
  - ANORGASMIA [None]
  - DEPRESSION [None]
  - DISTURBANCE IN ATTENTION [None]
  - EJACULATION FAILURE [None]
  - ERECTILE DYSFUNCTION [None]
  - FATIGUE [None]
  - LIBIDO DECREASED [None]
  - MEMORY IMPAIRMENT [None]
